FAERS Safety Report 13125420 (Version 1)
Quarter: 2017Q1

REPORT INFORMATION
  Report Type: Spontaneous
  Country: US (occurrence: US)
  Receive Date: 20170117
  Receipt Date: 20170117
  Transmission Date: 20170428
  Serious: Yes (Disabling)
  Sender: FDA-Public Use
  Company Number: None

PATIENT
  Age: 33 Year
  Sex: Female
  Weight: 63 kg

DRUGS (5)
  1. OMEGA FISH OIL [Concomitant]
     Active Substance: FISH OIL\OMEGA-3 FATTY ACIDS
  2. VITAMIN B COMPLEX WITH C [Concomitant]
     Active Substance: ASCORBIC ACID\CALCIUM PANTOTHENATE\CYANOCOBALAMIN\NIACINAMIDE\PYRIDOXINE HYDROCHLORIDE\RIBOFLAVIN\THIAMINE MONONITRATE
  3. LEVOFLOXACIN 500 MG [Suspect]
     Active Substance: LEVOFLOXACIN
     Indication: INFLUENZA LIKE ILLNESS
     Dosage: ?          QUANTITY:5 TABLET(S);?
     Route: 048
     Dates: start: 20161224, end: 20161225
  4. PROBIOTIC [Concomitant]
     Active Substance: PROBIOTICS NOS
  5. CENTRUM [Concomitant]
     Active Substance: VITAMINS

REACTIONS (7)
  - Paraesthesia [None]
  - Abasia [None]
  - Arthropathy [None]
  - Neuropathy peripheral [None]
  - Pain [None]
  - Musculoskeletal stiffness [None]
  - Impaired quality of life [None]

NARRATIVE: CASE EVENT DATE: 20161225
